FAERS Safety Report 6166824-8 (Version None)
Quarter: 2009Q2

REPORT INFORMATION
  Report Type: 
  Country: None (occurrence: None)
  Receive Date: 20090422
  Receipt Date: 20090409
  Transmission Date: 20091009
  Serious: Yes (Other)
  Sender: FDA-Public Use
  Company Number: 1000005826

PATIENT
  Age: 43 Year
  Sex: Female

DRUGS (2)
  1. ESCITALOPRAM [Suspect]
     Indication: ANXIETY
     Dosage: 5 MG (5MG, 1 IN 1 D), ORAL
     Route: 048
     Dates: start: 20090403, end: 20090406
  2. ESCITALOPRAM [Suspect]
     Indication: DEPRESSION
     Dosage: 5 MG (5MG, 1 IN 1 D), ORAL
     Route: 048
     Dates: start: 20090403, end: 20090406

REACTIONS (4)
  - DIARRHOEA [None]
  - GENERAL PHYSICAL HEALTH DETERIORATION [None]
  - PYREXIA [None]
  - VISUAL IMPAIRMENT [None]
